FAERS Safety Report 8231070-0 (Version None)
Quarter: 2012Q1

REPORT INFORMATION
  Report Type: 
  Country: None (occurrence: None)
  Receive Date: 20120323
  Receipt Date: 20120313
  Transmission Date: 20120608
  Serious: Yes (Death, Hospitalization)
  Sender: FDA-Public Use
  Company Number: GB-JNJFOC-20100800119

PATIENT
  Age: 69 Year
  Sex: Male
  Weight: 81 kg

DRUGS (10)
  1. SULFASALAZINE [Concomitant]
     Route: 048
     Dates: start: 20030521
  2. ESOMEPRAZOLE SODIUM [Concomitant]
     Dosage: MORNINGS
     Route: 048
  3. ADCAL [Concomitant]
     Route: 048
  4. DIPYRIDAMOLE [Concomitant]
     Route: 048
  5. INFLIXIMAB, RECOMBINANT [Suspect]
     Indication: RHEUMATOID ARTHRITIS
     Route: 042
     Dates: start: 20081222
  6. INFLIXIMAB, RECOMBINANT [Suspect]
     Route: 042
     Dates: start: 20030521
  7. ZOPICLONE [Concomitant]
     Dosage: NIGHT TIME
     Route: 048
  8. METHOTREXATE [Concomitant]
     Dosage: ONCE WEEKLY ON WEDNESDAY
     Route: 048
     Dates: start: 20030521
  9. PERINDOPRIL ERBUMINE [Concomitant]
     Dosage: MORNINGS
     Route: 048
  10. AMITRIPTYLINE HCL [Concomitant]
     Dosage: NIGHT TIME
     Route: 048

REACTIONS (5)
  - PNEUMONIA [None]
  - SEPSIS [None]
  - CELLULITIS [None]
  - SKIN ULCER [None]
  - DEATH [None]
